FAERS Safety Report 7644244-4 (Version None)
Quarter: 2011Q3

REPORT INFORMATION
  Report Type: 
  Country: None (occurrence: None)
  Receive Date: 20110729
  Receipt Date: 20110718
  Transmission Date: 20111222
  Serious: Yes (Other)
  Sender: FDA-Public Use
  Company Number: PHHY2011IT64488

PATIENT

DRUGS (7)
  1. ALLOPURINOL [Concomitant]
     Dosage: 300 MG, DAILY
     Dates: start: 20081201
  2. COUMADIN [Concomitant]
     Dosage: 1 DF, UNK
     Route: 048
  3. IRBESARTAN [Concomitant]
     Dosage: 300 MG, DAILY
  4. ESOPRAL [Concomitant]
     Dosage: 40 MG, DAILY
     Route: 048
  5. ATENOLOL [Concomitant]
     Dosage: 25 MG, DAILY
  6. TASIGNA [Suspect]
     Indication: CHRONIC MYELOID LEUKAEMIA
     Dosage: 400 MG, DAILY
     Route: 048
     Dates: start: 20090721
  7. TASIGNA [Suspect]
     Dosage: 800 MG, DAILY
     Route: 048
     Dates: end: 20090726

REACTIONS (6)
  - ABDOMINAL PAIN [None]
  - ASPARTATE AMINOTRANSFERASE INCREASED [None]
  - VOMITING [None]
  - HEPATOTOXICITY [None]
  - BLOOD BILIRUBIN INCREASED [None]
  - ALANINE AMINOTRANSFERASE INCREASED [None]
